FAERS Safety Report 21021800 (Version 1)
Quarter: 2022Q2

REPORT INFORMATION
  Report Type: Spontaneous
  Country: CA (occurrence: None)
  Receive Date: 20220629
  Receipt Date: 20220629
  Transmission Date: 20220721
  Serious: Yes (Other)
  Sender: FDA-Public Use
  Company Number: CA-ROCHE-3125348

PATIENT
  Age: 59 Year
  Sex: Female

DRUGS (12)
  1. RITUXIMAB [Suspect]
     Active Substance: RITUXIMAB
     Indication: Rheumatoid arthritis
     Route: 041
  2. DILAUDID [Concomitant]
     Active Substance: HYDROMORPHONE HYDROCHLORIDE
  3. ACETYLSALICYLIC ACID;BUTALBITAL;CAFFEINE;CODEINE PHOSPHATE;PHENACETIN [Concomitant]
  4. ACETAMINOPHEN [Concomitant]
     Active Substance: ACETAMINOPHEN
  5. FLUCONAZOLE [Concomitant]
     Active Substance: FLUCONAZOLE
     Indication: Fungal infection
  6. SULFASALAZINE [Concomitant]
     Active Substance: SULFASALAZINE
  7. DIPHENHYDRAMINE HYDROCHLORIDE [Concomitant]
     Active Substance: DIPHENHYDRAMINE HYDROCHLORIDE
     Indication: Premedication
  8. HYDROMORPHONE [Concomitant]
     Active Substance: HYDROMORPHONE
  9. NORFLEX [Concomitant]
     Active Substance: ORPHENADRINE CITRATE
  10. METHYLPREDNISOLONE [Concomitant]
     Active Substance: METHYLPREDNISOLONE
  11. HYDROXYCHLOROQUINE SULFATE [Concomitant]
     Active Substance: HYDROXYCHLOROQUINE SULFATE
  12. CELEBREX [Concomitant]
     Active Substance: CELECOXIB

REACTIONS (7)
  - Rash [Unknown]
  - Bursa disorder [Unknown]
  - Ill-defined disorder [Unknown]
  - Illness [Unknown]
  - Nodule [Unknown]
  - Blister rupture [Unknown]
  - Arthropathy [Unknown]
